FAERS Safety Report 6122128-0 (Version None)
Quarter: 2009Q1

REPORT INFORMATION
  Report Type: 
  Country: None (occurrence: None)
  Receive Date: 20090318
  Receipt Date: 20090317
  Transmission Date: 20090719
  Serious: Yes (Life-Threatening, Hospitalization)
  Sender: FDA-Public Use
  Company Number: FR-JNJFOC-20080802175

PATIENT
  Age: 72 Year
  Sex: Male

DRUGS (25)
  1. OFLOCET [Suspect]
     Indication: PSOAS ABSCESS
     Route: 048
  2. OFLOCET [Suspect]
     Indication: INTERVERTEBRAL DISCITIS
     Route: 048
  3. ZYLORIC [Suspect]
     Indication: DRUG USE FOR UNKNOWN INDICATION
     Route: 048
  4. DIAMICRON [Suspect]
     Indication: DRUG USE FOR UNKNOWN INDICATION
     Route: 048
  5. ROCEPHIN [Suspect]
     Indication: PSOAS ABSCESS
     Route: 042
  6. ROCEPHIN [Suspect]
     Indication: INTERVERTEBRAL DISCITIS
     Route: 042
  7. LERCAN [Suspect]
     Indication: DRUG USE FOR UNKNOWN INDICATION
     Route: 048
  8. IMOVANE [Concomitant]
     Route: 065
  9. FORLAX [Concomitant]
     Route: 065
  10. AERIUS [Concomitant]
     Route: 065
  11. XALATAN [Concomitant]
     Route: 047
  12. AZOPT [Concomitant]
     Route: 047
  13. CALCIPARINE [Concomitant]
     Indication: PROPHYLAXIS
     Route: 042
  14. NICARDIPINE HCL [Concomitant]
     Route: 048
  15. PERINDOPRIL ERBUMINE [Concomitant]
     Route: 048
  16. ALTIZIDE [Concomitant]
     Dosage: 0.5 U
     Route: 048
  17. FENOFIBRATE [Concomitant]
     Route: 048
  18. MOPRAL [Concomitant]
     Route: 048
  19. METFORMIN HCL [Concomitant]
     Route: 048
  20. NABUMETONE [Concomitant]
     Dosage: DOSE: 1 U
     Route: 048
  21. GENTAMYCINE [Concomitant]
     Indication: PSOAS ABSCESS
     Route: 065
  22. GENTAMYCINE [Concomitant]
     Indication: INTERVERTEBRAL DISCITIS
     Route: 065
  23. TRIFLUCAN [Concomitant]
     Indication: ORAL CANDIDIASIS
     Route: 065
  24. HUMAN INSULIN [Concomitant]
     Indication: DIABETES MELLITUS
     Route: 065
  25. FOSAMAX [Concomitant]
     Route: 065

REACTIONS (1)
  - DRUG RASH WITH EOSINOPHILIA AND SYSTEMIC SYMPTOMS [None]
